FAERS Safety Report 25086038 (Version 1)
Quarter: 2025Q1

REPORT INFORMATION
  Report Type: Report from Study
  Country: US (occurrence: US)
  Receive Date: 20250317
  Receipt Date: 20250317
  Transmission Date: 20250409
  Serious: Yes (Other)
  Sender: BIOGEN
  Company Number: US-BIOGEN-2025BI01303857

PATIENT
  Age: 28 Year
  Sex: Female

DRUGS (1)
  1. ZURZUVAE [Suspect]
     Active Substance: ZURANOLONE
     Indication: Perinatal depression
     Route: 050
     Dates: start: 20250301, end: 20250304

REACTIONS (8)
  - Suicidal ideation [Recovered/Resolved]
  - Visual impairment [Unknown]
  - Hot flush [Unknown]
  - Pain [Unknown]
  - Mania [Unknown]
  - Dizziness [Unknown]
  - Somnolence [Unknown]
  - Anxiety [Unknown]

NARRATIVE: CASE EVENT DATE: 20250301
